FAERS Safety Report 5224271-7 (Version None)
Quarter: 2007Q1

REPORT INFORMATION
  Report Type: 
  Country: None (occurrence: None)
  Receive Date: 20070130
  Receipt Date: 20070122
  Transmission Date: 20070707
  Serious: Yes (Other)
  Sender: FDA-Public Use
  Company Number: FR-GILEAD-2007-0011073

PATIENT
  Age: 55 Year
  Sex: Male

DRUGS (1)
  1. HEPSERA [Suspect]
     Indication: HEPATITIS B
     Route: 048
     Dates: end: 20070119

REACTIONS (3)
  - CREATININE RENAL CLEARANCE DECREASED [None]
  - NEPHRITIS INTERSTITIAL [None]
  - RENAL FAILURE [None]
